FAERS Safety Report 16697033 (Version 4)
Quarter: 2020Q4

REPORT INFORMATION
  Report Type: Spontaneous
  Country: US (occurrence: US)
  Receive Date: 20190813
  Receipt Date: 20201021
  Transmission Date: 20210113
  Serious: Yes (Hospitalization)
  Sender: FDA-Public Use
  Company Number: US-PFIZER INC-2019341924

PATIENT
  Age: 62 Year
  Sex: Female
  Weight: 82 kg

DRUGS (2)
  1. ASPRIN [Concomitant]
     Active Substance: ASPIRIN
     Dosage: 325 MG, DAILY
  2. AMLODIPINE BESILATE [Suspect]
     Active Substance: AMLODIPINE BESYLATE
     Indication: BLOOD PRESSURE INCREASED
     Dosage: 5 MG, DAILY
     Dates: start: 2017

REACTIONS (4)
  - Hypersensitivity [Unknown]
  - Peripheral swelling [Not Recovered/Not Resolved]
  - Sluggishness [Not Recovered/Not Resolved]
  - Somnolence [Not Recovered/Not Resolved]
